FAERS Safety Report 5043858-8 (Version None)
Quarter: 2006Q3

REPORT INFORMATION
  Report Type: 
  Country: None (occurrence: None)
  Receive Date: 20060706
  Receipt Date: 20060629
  Transmission Date: 20061208
  Serious: Yes (Hospitalization)
  Sender: FDA-Public Use
  Company Number: FR-JNJFOC-20060606476

PATIENT
  Age: 91 Year
  Sex: Male

DRUGS (3)
  1. DURAGESIC-100 [Suspect]
     Indication: BACK PAIN
     Route: 062
  2. CONTRAMAL [Suspect]
     Indication: BACK PAIN
     Route: 048
  3. EFFERALGAN CODEINE [Suspect]
     Indication: BACK PAIN
     Route: 048

REACTIONS (7)
  - ABDOMINAL PAIN [None]
  - BACK PAIN [None]
  - CONSTIPATION [None]
  - DIARRHOEA [None]
  - INTESTINAL OBSTRUCTION [None]
  - OBSTRUCTION [None]
  - VOMITING [None]
